FAERS Safety Report 6695805-0 (Version None)
Quarter: 2010Q2

REPORT INFORMATION
  Report Type: 
  Country: None (occurrence: None)
  Receive Date: 20100421
  Receipt Date: 20100406
  Transmission Date: 20101027
  Serious: Yes (Death, Hospitalization)
  Sender: FDA-Public Use
  Company Number: 2010001283

PATIENT
  Age: 68 Year
  Sex: Male

DRUGS (10)
  1. TARCEVA [Suspect]
     Indication: LUNG ADENOCARCINOMA
     Dosage: 150 MG, QD, ORAL
     Route: 048
     Dates: start: 20091118, end: 20091204
  2. LANSOPRAZOLE [Concomitant]
  3. CERNILTON (CERNILTON) [Concomitant]
  4. CLARUTE (DILTIAZEM HYDROCHLORIDE) [Concomitant]
  5. MECOBALAMIN (MECOBALMIN) [Concomitant]
  6. URIEF [Concomitant]
  7. ASPIRIN [Concomitant]
  8. TICLOPIDINE HCL [Concomitant]
  9. HUSCODE (HUSCODE) [Concomitant]
  10. LOXOPROFEN (LOXOPROFEN) [Concomitant]

REACTIONS (8)
  - ANGINA PECTORIS [None]
  - CORYNEBACTERIUM INFECTION [None]
  - CYTOMEGALOVIRUS INFECTION [None]
  - INTERSTITIAL LUNG DISEASE [None]
  - PLEURAL EFFUSION [None]
  - PSEUDOMONAS INFECTION [None]
  - SPUTUM CULTURE POSITIVE [None]
  - STAPHYLOCOCCAL INFECTION [None]
